FAERS Safety Report 11523768 (Version 1)
Quarter: 2015Q3

REPORT INFORMATION
  Report Type: Spontaneous
  Country: US (occurrence: US)
  Receive Date: 20150903
  Receipt Date: 20150903
  Transmission Date: 20151125
  Serious: Yes (Other)
  Sender: FDA-Public Use
  Company Number: US-ELI_LILLY_AND_COMPANY-US201304002808

PATIENT
  Age: 48 Year
  Sex: Female

DRUGS (3)
  1. CYMBALTA [Suspect]
     Active Substance: DULOXETINE HYDROCHLORIDE
     Indication: BACK PAIN
     Dosage: 60 MG, QD
     Route: 065
  2. FENTANYL. [Concomitant]
     Active Substance: FENTANYL
     Dosage: UNK, UNKNOWN
     Route: 065
  3. CYMBALTA [Suspect]
     Active Substance: DULOXETINE HYDROCHLORIDE
     Dosage: 30 MG, QD
     Route: 065

REACTIONS (8)
  - Vomiting [Unknown]
  - Anxiety [Unknown]
  - Serotonin syndrome [Unknown]
  - Speech disorder [Unknown]
  - Hyperhidrosis [Unknown]
  - Urinary incontinence [Unknown]
  - Blood pressure increased [Unknown]
  - Insomnia [Unknown]
